FAERS Safety Report 4384876-2 (Version None)
Quarter: 2004Q2

REPORT INFORMATION
  Report Type: 
  Country: None (occurrence: None)
  Receive Date: 20040621
  Receipt Date: 20040608
  Transmission Date: 20050107
  Serious: No
  Sender: FDA-Public Use
  Company Number: 04P-087-0263173-00

PATIENT
  Age: 6 Month
  Sex: Male

DRUGS (3)
  1. SEVOFLURANE [Suspect]
     Indication: ANAESTHESIA
     Dosage: INHALATION
     Route: 055
  2. NITROUS OXIDE [Concomitant]
  3. OXYGEN [Concomitant]

REACTIONS (3)
  - ANAESTHETIC COMPLICATION [None]
  - ELECTROCARDIOGRAM ST SEGMENT ABNORMAL [None]
  - VENTRICULAR FIBRILLATION [None]
